FAERS Safety Report 4995267-5 (Version None)
Quarter: 2006Q2

REPORT INFORMATION
  Report Type: 
  Country: None (occurrence: None)
  Receive Date: 20060508
  Receipt Date: 20060109
  Transmission Date: 20061013
  Serious: Yes (Hospitalization)
  Sender: FDA-Public Use
  Company Number: US-MERCK-0601USA01019

PATIENT
  Age: 58 Year
  Sex: Female
  Weight: 59 kg

DRUGS (22)
  1. VIOXX [Suspect]
     Route: 048
     Dates: start: 20000101, end: 20030101
  2. CELEXA [Concomitant]
     Route: 065
  3. ZYPREXA [Concomitant]
     Route: 065
  4. ACETAMINOPHEN AND HYDROCODONE BITARTRATE [Concomitant]
     Route: 065
  5. WELLBUTRIN [Concomitant]
     Route: 065
  6. PROPRANOLOL HYDROCHLORIDE [Concomitant]
     Route: 065
  7. LIPITOR [Concomitant]
     Route: 065
  8. LORAZEPAM [Concomitant]
     Route: 065
  9. DIAZEPAM [Concomitant]
     Route: 065
  10. DEXEDRINE [Concomitant]
     Route: 065
  11. PREMARIN [Concomitant]
     Route: 065
  12. IMITREX [Concomitant]
     Route: 065
  13. FIORICET TABLETS [Concomitant]
     Route: 065
  14. DURAGESIC-100 [Concomitant]
     Route: 065
  15. DEPAKOTE [Concomitant]
     Route: 065
  16. ZOLOFT [Concomitant]
     Route: 065
  17. MORPHINE [Concomitant]
     Route: 065
  18. ZANAFLEX [Concomitant]
     Route: 065
  19. CYTOMEL [Concomitant]
     Route: 065
  20. CLONAZEPAM [Concomitant]
     Route: 065
  21. OXYCODONE [Concomitant]
     Route: 065
  22. LITHIUM SULFATE [Concomitant]
     Route: 065

REACTIONS (4)
  - CARDIAC DISORDER [None]
  - CHEST PAIN [None]
  - NEOPLASM MALIGNANT [None]
  - THROMBOSIS [None]
